FAERS Safety Report 5065614-7 (Version None)
Quarter: 2006Q3

REPORT INFORMATION
  Report Type: 
  Country: None (occurrence: None)
  Receive Date: 20060725
  Receipt Date: 20060706
  Transmission Date: 20061208
  Serious: Yes (Hospitalization)
  Sender: FDA-Public Use
  Company Number: GR200607000906

PATIENT
  Age: 19 Year
  Sex: Male
  Weight: 70 kg

DRUGS (1)
  1. TADALAFIL (TADALAFIL) TABLET [Suspect]
     Indication: SEXUAL DYSFUNCTION
     Dosage: 20 MG, DAILY (1/D); ORAL
     Route: 048
     Dates: start: 20060622, end: 20060622

REACTIONS (2)
  - HYPERSENSITIVITY [None]
  - TESTICULAR PAIN [None]
